FAERS Safety Report 19988845 (Version 1)
Quarter: 2021Q4

REPORT INFORMATION
  Report Type: Report from Study
  Country: None (occurrence: CO)
  Receive Date: 20211024
  Receipt Date: 20211024
  Transmission Date: 20220303
  Serious: Yes (Hospitalization)
  Sender: FDA-Public Use
  Company Number: CO-ABBVIE-21K-036-4133528-00

PATIENT
  Age: 55 Year
  Sex: Female
  Weight: 49 kg

DRUGS (7)
  1. HUMIRA [Suspect]
     Active Substance: ADALIMUMAB
     Indication: Colitis ulcerative
     Route: 058
  2. HUMIRA [Suspect]
     Active Substance: ADALIMUMAB
     Route: 058
     Dates: start: 20210323
  3. DIPYRONE [Concomitant]
     Active Substance: DIPYRONE
     Indication: Inflammation
     Route: 048
  4. DIPYRONE [Concomitant]
     Active Substance: DIPYRONE
     Route: 048
  5. DIPYRONE [Concomitant]
     Active Substance: DIPYRONE
     Route: 048
  6. DIPYRONE [Concomitant]
     Active Substance: DIPYRONE
     Route: 048
  7. DIPYRONE [Concomitant]
     Active Substance: DIPYRONE
     Route: 048

REACTIONS (6)
  - Colitis [Not Recovered/Not Resolved]
  - Pain [Not Recovered/Not Resolved]
  - Illness [Unknown]
  - Hypophagia [Unknown]
  - Vomiting [Unknown]
  - Diarrhoea [Unknown]

NARRATIVE: CASE EVENT DATE: 20211001
